FAERS Safety Report 4954615-2 (Version None)
Quarter: 2006Q1

REPORT INFORMATION
  Report Type: 
  Country: None (occurrence: None)
  Receive Date: 20060327
  Receipt Date: 20060316
  Transmission Date: 20060701
  Serious: Yes (Hospitalization)
  Sender: FDA-Public Use
  Company Number: AU-ROCHE-440753

PATIENT
  Age: 26 Year
  Sex: Male
  Weight: 56.9 kg

DRUGS (5)
  1. CELLCEPT [Suspect]
     Indication: DRUG USE FOR UNKNOWN INDICATION
     Route: 065
     Dates: start: 20050810, end: 20051031
  2. SIROLIMUS [Suspect]
     Route: 048
     Dates: start: 20050809, end: 20051031
  3. OMEPRAZOLE [Concomitant]
     Route: 048
     Dates: start: 20050811
  4. NYSTATIN [Concomitant]
     Route: 048
  5. PREDNISOLONE [Concomitant]

REACTIONS (2)
  - ABDOMINAL PAIN [None]
  - POST PROCEDURAL COMPLICATION [None]
